FAERS Safety Report 17900837 (Version 1)
Quarter: 2020Q2

REPORT INFORMATION
  Report Type: Spontaneous
  Country: US (occurrence: US)
  Receive Date: 20200616
  Receipt Date: 20200616
  Transmission Date: 20200714
  Serious: Yes (Hospitalization)
  Sender: FDA-Public Use
  Company Number: None

PATIENT
  Sex: Male

DRUGS (1)
  1. KITABIS PAK [Suspect]
     Active Substance: TOBRAMYCIN
     Dates: start: 20190807

REACTIONS (3)
  - Catheterisation cardiac [None]
  - Post procedural complication [None]
  - Pneumonia [None]
